FAERS Safety Report 20444755 (Version 9)
Quarter: 2023Q1

REPORT INFORMATION
  Report Type: Spontaneous
  Country: US (occurrence: US)
  Receive Date: 20220208
  Receipt Date: 20230127
  Transmission Date: 20230418
  Serious: Yes (Death, Other)
  Sender: FDA-Public Use
  Company Number: US-PFIZER INC-202200124964

PATIENT
  Age: 63 Year
  Sex: Female

DRUGS (9)
  1. IBRANCE [Suspect]
     Active Substance: PALBOCICLIB
     Dosage: 125 MG
     Dates: start: 20220111
  2. IBRANCE [Suspect]
     Active Substance: PALBOCICLIB
     Dosage: 125 MG
     Dates: start: 20220113, end: 20220126
  3. IBRANCE [Suspect]
     Active Substance: PALBOCICLIB
     Dosage: 2 WEEKS
     Dates: start: 20220117
  4. IBRANCE [Suspect]
     Active Substance: PALBOCICLIB
     Dosage: FOR 2 WEEKS
  5. IBRANCE [Suspect]
     Active Substance: PALBOCICLIB
     Dosage: 125 MG
     Dates: start: 20220126, end: 20220220
  6. IBRANCE [Suspect]
     Active Substance: PALBOCICLIB
     Dosage: 125 MG
     Dates: start: 20220124, end: 20220221
  7. IBRANCE [Suspect]
     Active Substance: PALBOCICLIB
     Dosage: 100 MG
  8. IBRANCE [Suspect]
     Active Substance: PALBOCICLIB
     Dosage: 75 MG
  9. LETROZOLE [Suspect]
     Active Substance: LETROZOLE
     Dosage: UNK

REACTIONS (11)
  - Cardiac arrest [Fatal]
  - Arthropathy [Unknown]
  - Hot flush [Unknown]
  - Diarrhoea [Unknown]
  - Stomatitis [Recovering/Resolving]
  - COVID-19 [Unknown]
  - Fatigue [Unknown]
  - Feeling cold [Unknown]
  - White blood cell count decreased [Unknown]
  - Neutrophil count decreased [Unknown]
  - Body temperature abnormal [Recovered/Resolved]

NARRATIVE: CASE EVENT DATE: 20220101
